FAERS Safety Report 20436604 (Version 3)
Quarter: 2022Q1

REPORT INFORMATION
  Report Type: Spontaneous
  Country: US (occurrence: US)
  Receive Date: 20220207
  Receipt Date: 20220224
  Transmission Date: 20220424
  Serious: No
  Sender: FDA-Public Use
  Company Number: US-GLAXOSMITHKLINE-US2022AMR020269

PATIENT
  Sex: Female

DRUGS (3)
  1. ZEJULA [Suspect]
     Active Substance: NIRAPARIB
     Indication: Ovarian cancer
     Dosage: 200 MG
     Dates: start: 20220125
  2. VALSARTAN [Concomitant]
     Active Substance: VALSARTAN
     Indication: Hypertension
     Dosage: DOSE UNKNOWN
  3. VALSARTAN [Concomitant]
     Active Substance: VALSARTAN
     Indication: Blood pressure increased
     Dosage: DOUBLED DOSE

REACTIONS (11)
  - Blood pressure increased [Not Recovered/Not Resolved]
  - Hypertension [Not Recovered/Not Resolved]
  - Fatigue [Recovering/Resolving]
  - Nausea [Recovering/Resolving]
  - Tachycardia [Not Recovered/Not Resolved]
  - Heart rate increased [Not Recovered/Not Resolved]
  - Dry mouth [Not Recovered/Not Resolved]
  - Thirst [Not Recovered/Not Resolved]
  - Erythema [Not Recovered/Not Resolved]
  - Peripheral swelling [Not Recovered/Not Resolved]
  - Skin warm [Not Recovered/Not Resolved]
